FAERS Safety Report 16858606 (Version 1)
Quarter: 2019Q3

REPORT INFORMATION
  Report Type: Spontaneous
  Country: US (occurrence: US)
  Receive Date: 20190805
  Receipt Date: 20190805
  Transmission Date: 20191005
  Serious: Yes (Hospitalization)
  Sender: FDA-Public Use
  Company Number: None

PATIENT
  Age: 59 Year
  Sex: Male

DRUGS (9)
  1. POT CL MICRO [Concomitant]
  2. CLONAZEPAM. [Concomitant]
     Active Substance: CLONAZEPAM
  3. TAMSULOSIN [Concomitant]
     Active Substance: TAMSULOSIN
  4. ZYTIGA [Suspect]
     Active Substance: ABIRATERONE ACETATE
     Indication: PROSTATE CANCER
     Route: 048
     Dates: start: 20180405
  5. PREDNISONE. [Concomitant]
     Active Substance: PREDNISONE
  6. SIMVASTATIN. [Concomitant]
     Active Substance: SIMVASTATIN
  7. LACTULOSE SOL [Concomitant]
  8. VIT D [Concomitant]
     Active Substance: VITAMIN D NOS
  9. FUROSEMIDE. [Concomitant]
     Active Substance: FUROSEMIDE

REACTIONS (1)
  - Haemorrhage [None]

NARRATIVE: CASE EVENT DATE: 20190701
